FAERS Safety Report 5635848-9 (Version None)
Quarter: 2008Q1

REPORT INFORMATION
  Report Type: 
  Country: None (occurrence: None)
  Receive Date: 20080221
  Receipt Date: 20080214
  Transmission Date: 20080703
  Serious: No
  Sender: FDA-Public Use
  Company Number: 2008020036

PATIENT
  Age: 15 Year
  Sex: Male

DRUGS (1)
  1. VOLUVEN [Suspect]
     Indication: SURGERY

REACTIONS (1)
  - HYPERSENSITIVITY [None]
